FAERS Safety Report 5353807-0 (Version None)
Quarter: 2007Q2

REPORT INFORMATION
  Report Type: 
  Country: None (occurrence: None)
  Receive Date: 20070521
  Receipt Date: 20070201
  Transmission Date: 20071010
  Serious: No
  Sender: FDA-Public Use
  Company Number: WAES 0702USA00425

PATIENT
  Age: 63 Year
  Sex: Female
  Weight: 83.9154 kg

DRUGS (8)
  1. JANUVIA [Suspect]
     Indication: DIABETES MELLITUS NON-INSULIN-DEPENDENT
     Dosage: 100 MG/DAILY/PO
     Route: 048
     Dates: start: 20061212, end: 20070125
  2. ACTOS [Concomitant]
  3. ATIVAN [Concomitant]
  4. EVISTA [Concomitant]
  5. HALCION [Concomitant]
  6. PROTONIX [Concomitant]
  7. REGLAN [Concomitant]
  8. ZOCOR [Concomitant]

REACTIONS (4)
  - HYPOGLYCAEMIA [None]
  - NAUSEA [None]
  - NERVOUSNESS [None]
  - TREMOR [None]
